FAERS Safety Report 4472865-9 (Version None)
Quarter: 2004Q4

REPORT INFORMATION
  Report Type: 
  Country: None (occurrence: None)
  Receive Date: 20041012
  Receipt Date: 20041012
  Transmission Date: 20050328
  Serious: Yes (Hospitalization)
  Sender: FDA-Public Use
  Company Number: None

PATIENT
  Age: 73 Year
  Sex: Male
  Weight: 59.4 kg

DRUGS (1)
  1. SULINDAC [Suspect]
     Indication: RHEUMATOID ARTHRITIS
     Dosage: 400MG, 200 MG BID, ORAL
     Route: 048
     Dates: start: 20030819, end: 20040616

REACTIONS (1)
  - GASTROINTESTINAL HAEMORRHAGE [None]
